FAERS Safety Report 9681004 (Version 1)
Quarter: 2013Q4

REPORT INFORMATION
  Report Type: Spontaneous
  Country: US (occurrence: US)
  Receive Date: 20131111
  Receipt Date: 20131111
  Transmission Date: 20140711
  Serious: Yes (Other)
  Sender: FDA-Public Use
  Company Number: US-ASTRAZENECA-2013SE81418

PATIENT
  Age: 542 Month
  Sex: Female
  Weight: 114.8 kg

DRUGS (4)
  1. NEXIUM [Suspect]
     Indication: GASTROOESOPHAGEAL REFLUX DISEASE
     Route: 048
     Dates: start: 2006, end: 201306
  2. LISINOPRIL [Suspect]
     Indication: HYPERTENSION
     Route: 048
  3. PROTONIX [Suspect]
     Indication: GASTROOESOPHAGEAL REFLUX DISEASE
     Route: 065
     Dates: start: 2006
  4. SPIRONOLACTONE [Concomitant]
     Indication: HYPERTENSION

REACTIONS (4)
  - Dysphagia [Unknown]
  - Feeding tube complication [Unknown]
  - Nasopharyngitis [Unknown]
  - Abdominal discomfort [Unknown]
